FAERS Safety Report 15546449 (Version 6)
Quarter: 2019Q2

REPORT INFORMATION
  Report Type: Report from Study
  Country: GB (occurrence: GB)
  Receive Date: 20181024
  Receipt Date: 20190411
  Transmission Date: 20190711
  Serious: Yes (Hospitalization, Other)
  Sender: FDA-Public Use
  Company Number: GB-BRISTOL-MYERS SQUIBB COMPANY-BMS-2018-098285

PATIENT
  Age: 67 Year
  Sex: Male
  Weight: 67.4 kg

DRUGS (16)
  1. NAPROXEN. [Concomitant]
     Active Substance: NAPROXEN
     Indication: MUSCULOSKELETAL PAIN
     Dosage: 500 MG, QD
     Route: 048
  2. ESOMEPRAZOLE. [Concomitant]
     Active Substance: ESOMEPRAZOLE MAGNESIUM
     Indication: PRODUCT USED FOR UNKNOWN INDICATION
     Dosage: 20 MG, QD
     Route: 048
     Dates: start: 20170907
  3. COCODAMOL [Concomitant]
     Active Substance: ACETAMINOPHEN\CODEINE PHOSPHATE
     Indication: MUSCULOSKELETAL PAIN
     Dosage: 1 DF, QD
     Route: 048
  4. NAPROXEN. [Concomitant]
     Active Substance: NAPROXEN
     Indication: PAIN
     Dosage: 500 MG, PRN
     Route: 048
  5. CALCIPOTRIOL [Concomitant]
     Active Substance: CALCIPOTRIENE
     Indication: SEBORRHOEIC DERMATITIS
     Route: 065
  6. PHOSPHATE SANDOZ [Concomitant]
     Active Substance: SODIUM PHOSPHATE, MONOBASIC, ANHYDROUS
     Indication: PRODUCT USED FOR UNKNOWN INDICATION
     Dosage: 1 DF, Q8H
     Route: 048
     Dates: start: 201810
  7. LUPRON DEPOT [Concomitant]
     Active Substance: LEUPROLIDE ACETATE
     Indication: PROSTATE CANCER
     Dosage: 11.25 MG, Q10WK
     Route: 058
     Dates: start: 20140506
  8. ADCAL D3 [Concomitant]
     Active Substance: CALCIUM CARBONATE\CHOLECALCIFEROL
     Indication: OSTEOPENIA
     Dosage: 2 DF, QD
     Route: 048
     Dates: start: 20150303
  9. CALCIPOTRIOL [Concomitant]
     Active Substance: CALCIPOTRIENE
     Indication: RASH
     Dosage: 1 DF, QD
     Route: 061
     Dates: start: 2008
  10. AMOXICILLIN. [Concomitant]
     Active Substance: AMOXICILLIN
     Indication: LOWER RESPIRATORY TRACT INFECTION
     Dosage: 500 MG, TID
     Route: 048
     Dates: start: 20181005, end: 20181010
  11. IPILIMUMAB [Suspect]
     Active Substance: IPILIMUMAB
     Indication: PROSTATE CANCER
     Dosage: 3 MG/KG, Q3WK
     Route: 042
     Dates: start: 20181003
  12. ALENDRONATE [Concomitant]
     Active Substance: ALENDRONATE SODIUM
     Indication: OSTEOPENIA
     Dosage: 70 MG, QWK
     Route: 048
     Dates: start: 20150303
  13. BETNOVATE [Concomitant]
     Active Substance: BETAMETHASONE
     Indication: RASH
     Dosage: UNK, PRN
     Route: 061
     Dates: start: 2008
  14. BETNOVATE [Concomitant]
     Active Substance: BETAMETHASONE
     Indication: SEBORRHOEIC DERMATITIS
     Dosage: 1 DF, QD
     Route: 061
     Dates: start: 2008
  15. PHOSPHATE SANDOZ [Concomitant]
     Active Substance: SODIUM PHOSPHATE, MONOBASIC, ANHYDROUS
     Indication: HYPOPHOSPHATAEMIA
     Dosage: 1 TAB, BID
     Route: 048
     Dates: start: 20181018, end: 20181021
  16. NIVOLUMAB [Suspect]
     Active Substance: NIVOLUMAB
     Indication: PROSTATE CANCER
     Dosage: 1 MG/KG, Q3WK
     Route: 042
     Dates: start: 20181003

REACTIONS (7)
  - Thyroiditis [Recovered/Resolved]
  - Pyrexia [Recovered/Resolved]
  - Hypotension [Recovered/Resolved]
  - Inflammation [Not Recovered/Not Resolved]
  - Diarrhoea [Recovered/Resolved]
  - Colitis [Recovered/Resolved]
  - Dehydration [Recovered/Resolved]

NARRATIVE: CASE EVENT DATE: 20181016
